FAERS Safety Report 8715752 (Version 2)
Quarter: 2012Q4

REPORT INFORMATION
  Report Type: Spontaneous
  Country: GB (occurrence: None)
  Receive Date: 20120725
  Receipt Date: 20121004
  Transmission Date: 20130627
  Serious: Yes (Other)
  Sender: FDA-Public Use
  Company Number: 2012AP002090

PATIENT
  Age: 75 Year
  Sex: Male

DRUGS (6)
  1. PERINDOPRIL ERBUMINE [Suspect]
     Indication: PRODUCT USED FOR UNKNOWN INDICATION
     Route: 048
     Dates: start: 2007
  2. ASPIRIN [Concomitant]
  3. BISOPROLOL FUMARATE [Concomitant]
  4. METFORMIN HYDROCHLORIDE [Concomitant]
  5. SIMVASTATIN [Concomitant]
  6. BISOPROLOL [Concomitant]

REACTIONS (4)
  - Heart rate irregular [None]
  - Blood pressure increased [None]
  - Sinus arrhythmia [None]
  - Tachycardia [None]
